FAERS Safety Report 5941003-5 (Version None)
Quarter: 2008Q4

REPORT INFORMATION
  Report Type: 
  Country: None (occurrence: None)
  Receive Date: 20081104
  Receipt Date: 20081030
  Transmission Date: 20090506
  Serious: Yes (Death, Other)
  Sender: FDA-Public Use
  Company Number: PHHY2008BR12244

PATIENT
  Sex: Male
  Weight: 16.5 kg

DRUGS (44)
  1. SANDIMMUNE [Suspect]
     Indication: PROPHYLAXIS AGAINST GRAFT VERSUS HOST DISEASE
     Dosage: 30 MG, BID
     Route: 042
     Dates: start: 20080418, end: 20080421
  2. SANDIMMUNE [Suspect]
     Dosage: 40 MG, BID
     Dates: end: 20080424
  3. ZOVIRAX [Concomitant]
  4. ONDANSETRON HYDROCHLORIDE [Concomitant]
  5. URSACOL [Concomitant]
  6. IMMUNE GLOBULIN NOS [Concomitant]
  7. GRANULOKINE [Concomitant]
  8. MEROPENEM [Concomitant]
  9. CANCIDAS [Concomitant]
  10. METRONIDAZOLE [Concomitant]
     Dosage: UNK
     Dates: end: 20080411
  11. ZYLORIC [Concomitant]
  12. AMLODIPINE [Concomitant]
  13. DIGESAN [Concomitant]
  14. CAPOTEN [Concomitant]
  15. MAXCEF [Concomitant]
  16. CYCLOPHOSPHAMIDE [Concomitant]
  17. CIPRO [Concomitant]
  18. TRAMADOL HCL [Concomitant]
  19. DIPYRONE TAB [Concomitant]
  20. HYOSCINE [Concomitant]
  21. NEUPOGEN [Concomitant]
  22. LASIX [Concomitant]
  23. GANCICLOVIR [Concomitant]
  24. SOLU-CORTEF [Concomitant]
  25. INSULIN [Concomitant]
  26. KETAMINE HCL [Concomitant]
  27. ZYVOX [Concomitant]
  28. MANNITOL [Concomitant]
  29. DORMONID [Concomitant]
  30. MORPHINE [Concomitant]
  31. METHOTREXATE [Concomitant]
  32. NORADRENALINE [Concomitant]
  33. OMEPRAZOLE [Concomitant]
  34. ZOFRAN [Concomitant]
  35. TYLENOL [Concomitant]
  36. ACETAMINOPHEN W/ CODEINE [Concomitant]
  37. FENERGAN [Concomitant]
  38. BACTRIM [Concomitant]
  39. PROGRAF [Concomitant]
  40. VANCOMYCIN HYDROCHLORIDE [Concomitant]
  41. HIDROXIZIN [Concomitant]
  42. ADALAT [Concomitant]
  43. DIGOXIN [Concomitant]
  44. AMPHOTERICIN B [Concomitant]

REACTIONS (16)
  - ABDOMINAL PAIN [None]
  - AGITATION [None]
  - ALTERED STATE OF CONSCIOUSNESS [None]
  - ARRHYTHMIA [None]
  - CONFUSIONAL STATE [None]
  - DEPRESSED LEVEL OF CONSCIOUSNESS [None]
  - DISORIENTATION [None]
  - HALLUCINATION, VISUAL [None]
  - HEADACHE [None]
  - IMMUNOSUPPRESSANT DRUG LEVEL DECREASED [None]
  - IRRITABILITY [None]
  - NEUROLOGICAL DECOMPENSATION [None]
  - RESPIRATORY DISORDER [None]
  - SEPSIS [None]
  - SOMNOLENCE [None]
  - VISUAL IMPAIRMENT [None]
